FAERS Safety Report 5199122-X (Version None)
Quarter: 2007Q1

REPORT INFORMATION
  Report Type: 
  Country: None (occurrence: None)
  Receive Date: 20070104
  Receipt Date: 20061227
  Transmission Date: 20070707
  Serious: Yes (Life-Threatening)
  Sender: FDA-Public Use
  Company Number: DE-PFIZER INC-2006042846

PATIENT
  Sex: Female

DRUGS (3)
  1. CABASERIL [Suspect]
     Indication: PARKINSON'S DISEASE
     Dosage: DAILY DOSE:4MG
     Route: 048
  2. AMANTADINE HCL [Concomitant]
     Route: 065
  3. NACOM ^DUPONT PHARMA^ [Concomitant]
     Route: 065

REACTIONS (4)
  - AORTIC VALVE INCOMPETENCE [None]
  - AORTIC VALVE SCLEROSIS [None]
  - CARDIAC FAILURE [None]
  - MITRAL VALVE INCOMPETENCE [None]
